FAERS Safety Report 26113350 (Version 1)
Quarter: 2025Q4

REPORT INFORMATION
  Report Type: Spontaneous
  Country: US (occurrence: US)
  Receive Date: 20251202
  Receipt Date: 20251202
  Transmission Date: 20260118
  Serious: No
  Sender: ASTELLAS
  Company Number: US-ASTELLAS-2025-AER-004968

PATIENT
  Age: 58 Year
  Sex: Male

DRUGS (1)
  1. PADCEV [Suspect]
     Active Substance: ENFORTUMAB VEDOTIN-EJFV
     Indication: Transitional cell carcinoma metastatic
     Dosage: DOSE: 1.25 UNITS UNKNOWN
     Route: 065
     Dates: start: 202501, end: 202501

REACTIONS (3)
  - Localised oedema [Unknown]
  - Discharge [Unknown]
  - Rash [Unknown]

NARRATIVE: CASE EVENT DATE: 20250101
